FAERS Safety Report 20224630 (Version 2)
Quarter: 2022Q1

REPORT INFORMATION
  Report Type: Spontaneous
  Country: JP (occurrence: JP)
  Receive Date: 20211223
  Receipt Date: 20220125
  Transmission Date: 20220424
  Serious: Yes (Death, Other)
  Sender: FDA-Public Use
  Company Number: JP-JAZZ-2021-JP-022622

PATIENT
  Age: 57 Year
  Sex: Male

DRUGS (1)
  1. DEFITELIO [Suspect]
     Active Substance: DEFIBROTIDE SODIUM
     Indication: Venoocclusive liver disease
     Dosage: UNKNOWN DOSE
     Route: 042
     Dates: start: 20211206, end: 20211211

REACTIONS (2)
  - Pulmonary alveolar haemorrhage [Fatal]
  - Haemoptysis [Fatal]
